FAERS Safety Report 8240031-7 (Version None)
Quarter: 2012Q1

REPORT INFORMATION
  Report Type: 
  Country: None (occurrence: None)
  Receive Date: 20120309
  Receipt Date: 20110217
  Transmission Date: 20120608
  Serious: Yes (Other)
  Sender: FDA-Public Use
  Company Number: PHHY2011US00695

PATIENT
  Age: 64 Year
  Sex: Female

DRUGS (4)
  1. EXTAVIA [Suspect]
     Indication: MULTIPLE SCLEROSIS
     Dosage: 0.062 MG, QOD, SUBCUTANEOUS
     Route: 058
     Dates: start: 20101231, end: 20101231
  2. BENADRYL ^ACHE^ (AMMONIUM CHLORIDE, DIPHENHYDRAMINE HYDROCHLORIDE, MEN [Concomitant]
  3. ACETAMINOPHEN [Concomitant]
  4. GAMMAGARD [Concomitant]

REACTIONS (14)
  - ORAL HERPES [None]
  - PRURITUS [None]
  - INFLUENZA LIKE ILLNESS [None]
  - GENITAL HERPES [None]
  - HEADACHE [None]
  - ASTHENIA [None]
  - DYSPNOEA [None]
  - SCAB [None]
  - DIZZINESS [None]
  - PAIN [None]
  - DIARRHOEA [None]
  - DRUG HYPERSENSITIVITY [None]
  - PARAESTHESIA [None]
  - RASH [None]
